FAERS Safety Report 9796636 (Version 1)
Quarter: 2014Q1

REPORT INFORMATION
  Report Type: Report from Study
  Country: JP (occurrence: JP)
  Receive Date: 20140103
  Receipt Date: 20140103
  Transmission Date: 20141002
  Serious: Yes (Other)
  Sender: FDA-Public Use
  Company Number: JP-MERCK-1401JPN000213

PATIENT
  Age: 64 Year
  Sex: 0

DRUGS (3)
  1. ALENDRONATE SODIUM [Suspect]
     Indication: OSTEOPOROSIS
     Dosage: 35 MG / WEEK
     Route: 048
  2. ALENDRONATE SODIUM [Suspect]
     Indication: OSTEOPENIA
  3. MENATETRENONE [Suspect]
     Dosage: 45 MG / DAY

REACTIONS (2)
  - Femoral neck fracture [Unknown]
  - Thoracic vertebral fracture [Unknown]
